FAERS Safety Report 7485673-1 (Version None)
Quarter: 2011Q2

REPORT INFORMATION
  Report Type: 
  Country: None (occurrence: None)
  Receive Date: 20110517
  Receipt Date: 20100601
  Transmission Date: 20111010
  Serious: No
  Sender: FDA-Public Use
  Company Number: US-PFIZER INC-2004052156

PATIENT
  Sex: Male

DRUGS (2)
  1. ALTACE [Concomitant]
     Dosage: UNK
  2. NICOTROL [Suspect]
     Dosage: UNK
     Route: 055

REACTIONS (3)
  - INCORRECT DRUG ADMINISTRATION DURATION [None]
  - DRUG INEFFECTIVE [None]
  - CONTUSION [None]
